FAERS Safety Report 4706752-5 (Version None)
Quarter: 2005Q2

REPORT INFORMATION
  Report Type: 
  Country: None (occurrence: None)
  Receive Date: 20050629
  Receipt Date: 20050425
  Transmission Date: 20051028
  Serious: No
  Sender: FDA-Public Use
  Company Number: 05P-163-0298397-00

PATIENT
  Age: 54 Year
  Sex: Female
  Weight: 62.5964 kg

DRUGS (7)
  1. HUMIRA [Suspect]
     Indication: RHEUMATOID ARTHRITIS
     Dosage: 40 MG, 1 IN 2 WK, SUBCUTANEOUS
     Route: 058
     Dates: start: 20040801
  2. RAMIPRIL [Concomitant]
  3. PIROXICAM [Concomitant]
  4. CALCIUM GLUCONATE [Concomitant]
  5. ASCORBIC ACID [Concomitant]
  6. FOLIC ACID [Concomitant]
  7. INSULIN (INSULIN LISPRO) [Concomitant]

REACTIONS (1)
  - OEDEMA PERIPHERAL [None]
